FAERS Safety Report 14159877 (Version 1)
Quarter: 2017Q4

REPORT INFORMATION
  Report Type: Report from Study
  Country: US (occurrence: US)
  Receive Date: 20171103
  Receipt Date: 20171103
  Transmission Date: 20180321
  Serious: No
  Sender: FDA-Public Use
  Company Number: US-AMGEN-USASL2017120484

PATIENT
  Age: 82 Year
  Sex: Female
  Weight: 60.32 kg

DRUGS (2)
  1. PROCRIT [Suspect]
     Active Substance: ERYTHROPOIETIN
     Indication: PRODUCT USED FOR UNKNOWN INDICATION
     Dosage: 10000 UNIT, UNK (RIGHT ARM)
     Route: 058
  2. PROCRIT [Suspect]
     Active Substance: ERYTHROPOIETIN
     Dosage: 10000 UNIT, UNK (LEFT ARM)
     Route: 058

REACTIONS (2)
  - Haemoglobin abnormal [Unknown]
  - Nasopharyngitis [Unknown]

NARRATIVE: CASE EVENT DATE: 20170104
